FAERS Safety Report 9498136 (Version 1)
Quarter: 2013Q3

REPORT INFORMATION
  Report Type: Spontaneous
  Country: US (occurrence: None)
  Receive Date: 20130903
  Receipt Date: 20130903
  Transmission Date: 20140515
  Serious: Yes (Other)
  Sender: FDA-Public Use
  Company Number: None

PATIENT
  Age: 54 Year
  Sex: Female

DRUGS (1)
  1. BUPROPRION XL 150MG MYLAN [Suspect]
     Indication: DEPRESSION
     Route: 048
     Dates: start: 20130805, end: 20130829

REACTIONS (1)
  - Abdominal discomfort [None]
